APPROVED DRUG PRODUCT: ESMOLOL HYDROCHLORIDE
Active Ingredient: ESMOLOL HYDROCHLORIDE
Strength: 2GM/100ML
Dosage Form/Route: INJECTABLE;INJECTION
Application: A207107 | Product #002 | TE Code: AP
Applicant: SAGENT PHARMACEUTICALS INC
Approved: Jun 8, 2018 | RLD: No | RS: No | Type: RX